FAERS Safety Report 6014083-9 (Version None)
Quarter: 2008Q4

REPORT INFORMATION
  Report Type: 
  Country: None (occurrence: None)
  Receive Date: 20081219
  Receipt Date: 20071129
  Transmission Date: 20090506
  Serious: No
  Sender: FDA-Public Use
  Company Number: A0696567A

PATIENT
  Age: 77 Year
  Sex: Male

DRUGS (6)
  1. AVODART [Suspect]
     Indication: DRUG USE FOR UNKNOWN INDICATION
     Dosage: .5MG PER DAY
     Route: 048
     Dates: start: 20071123
  2. PLAVIX [Concomitant]
  3. ASPIRIN [Concomitant]
  4. CAPTOPRIL [Concomitant]
  5. ACTOS [Concomitant]
  6. SIMVASTATIN [Concomitant]

REACTIONS (1)
  - CONSTIPATION [None]
